FAERS Safety Report 7245331-5 (Version None)
Quarter: 2011Q1

REPORT INFORMATION
  Report Type: 
  Country: None (occurrence: None)
  Receive Date: 20110126
  Receipt Date: 20110118
  Transmission Date: 20110831
  Serious: Yes (Hospitalization)
  Sender: FDA-Public Use
  Company Number: DE-ROCHE-754101

PATIENT
  Sex: Male
  Weight: 88.1 kg

DRUGS (4)
  1. MYCOPHENOLATE MOFETIL [Suspect]
     Indication: RENAL TRANSPLANT
     Dosage: DOSE 1000, UNIT AND FREQUENCY WAS NOT PROVIDED.
     Route: 048
     Dates: start: 20100606
  2. BASILIXIMAB [Suspect]
     Indication: RENAL TRANSPLANT
     Dosage: DATE OF LAST DOSE PRIOR TO SAE WAS 10 JUNE 2010.
     Route: 042
     Dates: start: 20100606
  3. TACROLIMUS [Suspect]
     Indication: RENAL TRANSPLANT
     Route: 048
     Dates: start: 20100606
  4. PREDNISOLONE [Suspect]
     Indication: RENAL TRANSPLANT
     Route: 048
     Dates: start: 20100606

REACTIONS (2)
  - PAIN IN EXTREMITY [None]
  - BONE MARROW OEDEMA [None]
